FAERS Safety Report 6007206-9 (Version None)
Quarter: 2008Q4

REPORT INFORMATION
  Report Type: 
  Country: None (occurrence: None)
  Receive Date: 20081217
  Receipt Date: 20080218
  Transmission Date: 20090506
  Serious: No
  Sender: FDA-Public Use
  Company Number: US-ASTRAZENECA-2008UW03262

PATIENT
  Sex: Female

DRUGS (3)
  1. CRESTOR [Suspect]
  2. ESTROGEN RING [Concomitant]
     Route: 015
  3. ESTROGENIC SUBSTANCE [Concomitant]

REACTIONS (2)
  - BLOOD OESTROGEN INCREASED [None]
  - BREAST TENDERNESS [None]
